FAERS Safety Report 7310744-X (Version None)
Quarter: 2011Q1

REPORT INFORMATION
  Report Type: 
  Country: None (occurrence: None)
  Receive Date: 20110224
  Receipt Date: 20110214
  Transmission Date: 20110831
  Serious: Yes (Hospitalization, Other)
  Sender: FDA-Public Use
  Company Number: PHHY2011US07230

PATIENT
  Sex: Female
  Weight: 42 kg

DRUGS (5)
  1. EXJADE [Suspect]
     Indication: MYELODYSPLASTIC SYNDROME
     Dosage: 750 MG, UNK
     Route: 048
  2. EXJADE [Suspect]
     Dosage: 250 MG, DAILY
     Route: 048
     Dates: start: 20101028
  3. TYLENOL [Concomitant]
     Indication: ARTHRITIS
  4. PREMARIN [Concomitant]
  5. VITAMIN D [Concomitant]

REACTIONS (9)
  - WEIGHT DECREASED [None]
  - NAUSEA [None]
  - VOMITING [None]
  - FATIGUE [None]
  - HIP FRACTURE [None]
  - FALL [None]
  - RASH [None]
  - ALOPECIA [None]
  - DEPRESSION [None]
